FAERS Safety Report 14841253 (Version 1)
Quarter: 2018Q2

REPORT INFORMATION
  Report Type: Spontaneous
  Country: US (occurrence: US)
  Receive Date: 20180418
  Receipt Date: 20180418
  Transmission Date: 20180711
  Serious: Yes (Death)
  Sender: FDA-Public Use
  Company Number: None

PATIENT
  Age: 73 Year
  Sex: Male
  Weight: 89 kg

DRUGS (1)
  1. KEYTRUDA [Suspect]
     Active Substance: PEMBROLIZUMAB
     Dates: start: 20180205

REACTIONS (11)
  - Dizziness [None]
  - Pain [None]
  - Liver function test increased [None]
  - Diplopia [None]
  - Myocarditis [None]
  - Rhabdomyolysis [None]
  - Dyspnoea [None]
  - Atrioventricular block complete [None]
  - Acute respiratory failure [None]
  - Transaminases increased [None]
  - Lethargy [None]

NARRATIVE: CASE EVENT DATE: 20180223
